FAERS Safety Report 7119531-9 (Version None)
Quarter: 2010Q4

REPORT INFORMATION
  Report Type: 
  Country: None (occurrence: None)
  Receive Date: 20101123
  Receipt Date: 20101028
  Transmission Date: 20110411
  Serious: Yes (Other)
  Sender: FDA-Public Use
  Company Number: FR-AMGEN-FRASP2010002172

PATIENT

DRUGS (1)
  1. ENBREL [Suspect]
     Indication: ANKYLOSING SPONDYLITIS
     Route: 058
     Dates: start: 20080815

REACTIONS (4)
  - ABDOMINAL PAIN [None]
  - CROHN'S DISEASE [None]
  - GASTROINTESTINAL INFLAMMATION [None]
  - GASTROINTESTINAL ULCER [None]
